FAERS Safety Report 7632105-6 (Version None)
Quarter: 2011Q3

REPORT INFORMATION
  Report Type: 
  Country: None (occurrence: None)
  Receive Date: 20110725
  Receipt Date: 20110725
  Transmission Date: 20111222
  Serious: Yes (Other)
  Sender: FDA-Public Use
  Company Number: None

PATIENT
  Age: 48 Year
  Sex: Female
  Weight: 89.5 kg

DRUGS (2)
  1. BENDAMUSTINE [Suspect]
     Indication: BLOOD DISORDER
     Dosage: 90 MG/M2 = 185 MG
     Route: 040
     Dates: start: 20110609, end: 20110610
  2. RITUXIMAB [Concomitant]
     Indication: BLOOD DISORDER
     Dosage: 375 MG/2 = 770 MG
     Route: 040
     Dates: start: 20110609, end: 20110609

REACTIONS (3)
  - HAEMOGLOBIN DECREASED [None]
  - WHITE BLOOD CELL COUNT DECREASED [None]
  - NEUTROPHIL COUNT DECREASED [None]
